APPROVED DRUG PRODUCT: LYNORAL
Active Ingredient: ETHINYL ESTRADIOL
Strength: 0.05MG
Dosage Form/Route: TABLET;ORAL
Application: N005490 | Product #002
Applicant: ORGANON USA INC
Approved: Approved Prior to Jan 1, 1982 | RLD: No | RS: No | Type: DISCN